FAERS Safety Report 13787204 (Version 1)
Quarter: 2017Q3

REPORT INFORMATION
  Report Type: Spontaneous
  Country: US (occurrence: US)
  Receive Date: 20170725
  Receipt Date: 20170725
  Transmission Date: 20171127
  Serious: No
  Sender: FDA-Public Use
  Company Number: US-UNITED THERAPEUTICS-UNT-2016-018494

PATIENT
  Age: 66 Year
  Sex: Female
  Weight: 103.4 kg

DRUGS (12)
  1. XARELTO [Concomitant]
     Active Substance: RIVAROXABAN
     Indication: PRODUCT USED FOR UNKNOWN INDICATION
  2. ADCIRCA [Concomitant]
     Active Substance: TADALAFIL
     Indication: PRODUCT USED FOR UNKNOWN INDICATION
  3. UPTRAVI [Suspect]
     Active Substance: SELEXIPAG
     Dosage: 600 ?G AM AND 800 ?G PM
     Route: 065
  4. LETAIRIS [Suspect]
     Active Substance: AMBRISENTAN
     Indication: PRODUCT USED FOR UNKNOWN INDICATION
     Dosage: 10 MG, QD
     Route: 065
  5. LETAIRIS [Suspect]
     Active Substance: AMBRISENTAN
     Dosage: 10 UNK, UNK
     Route: 065
  6. UPTRAVI [Suspect]
     Active Substance: SELEXIPAG
     Dosage: 600 ?G, TID
     Route: 065
  7. TYVASO [Suspect]
     Active Substance: TREPROSTINIL
     Indication: PULMONARY ARTERIAL HYPERTENSION
     Dosage: 18-54 MICROGRAMS, QID
  8. UPTRAVI [Suspect]
     Active Substance: SELEXIPAG
     Dosage: 800 ?G, TID
     Route: 065
  9. TYVASO [Suspect]
     Active Substance: TREPROSTINIL
     Dosage: 18-72 MICROGRAMS, QID
  10. UPTRAVI [Suspect]
     Active Substance: SELEXIPAG
     Indication: PRODUCT USED FOR UNKNOWN INDICATION
     Dosage: 800 ?G, BID
     Route: 065
  11. TYVASO [Suspect]
     Active Substance: TREPROSTINIL
     Indication: PULMONARY HYPERTENSION
     Dosage: 54-108 MICROGRAMS, QID
     Dates: start: 20100526
  12. UPTRAVI [Suspect]
     Active Substance: SELEXIPAG
     Dosage: 600 ?G, BID
     Route: 065

REACTIONS (13)
  - Muscle tightness [Unknown]
  - Back pain [Recovering/Resolving]
  - Feeling abnormal [Unknown]
  - Thirst [Unknown]
  - Nausea [Recovering/Resolving]
  - Paraesthesia [Unknown]
  - Vomiting [Recovering/Resolving]
  - Headache [Unknown]
  - Migraine [Recovering/Resolving]
  - Off label use [Unknown]
  - Decreased appetite [Unknown]
  - Neck pain [Recovering/Resolving]
  - Fatigue [Unknown]

NARRATIVE: CASE EVENT DATE: 201611
